FAERS Safety Report 18231274 (Version 2)
Quarter: 2020Q3

REPORT INFORMATION
  Report Type: Spontaneous
  Country: CA (occurrence: CA)
  Receive Date: 20200904
  Receipt Date: 20200921
  Transmission Date: 20201103
  Serious: Yes (Death, Other)
  Sender: FDA-Public Use
  Company Number: CA-PFIZER INC-2020317328

PATIENT
  Age: 15 Year
  Sex: Male

DRUGS (1)
  1. INLYTA [Suspect]
     Active Substance: AXITINIB
     Indication: TUMOUR MARKER INCREASED
     Dosage: UNK
     Dates: start: 20200702, end: 20200806

REACTIONS (14)
  - Peripheral swelling [Unknown]
  - Hypertension [Unknown]
  - Posterior reversible encephalopathy syndrome [Unknown]
  - Pyrexia [Unknown]
  - Erythema [Unknown]
  - Off label use [Unknown]
  - Product use issue [Unknown]
  - Brain herniation [Fatal]
  - Seizure [Unknown]
  - Confusional state [Unknown]
  - Somnolence [Unknown]
  - Chapped lips [Unknown]
  - Brain oedema [Fatal]
  - Respiratory rate increased [Unknown]

NARRATIVE: CASE EVENT DATE: 2020
